FAERS Safety Report 7759711-2 (Version None)
Quarter: 2011Q3

REPORT INFORMATION
  Report Type: 
  Country: None (occurrence: None)
  Receive Date: 20110919
  Receipt Date: 20110909
  Transmission Date: 20111222
  Serious: Yes (Death, Hospitalization)
  Sender: FDA-Public Use
  Company Number: GB-CELGENEUS-167-21880-11091140

PATIENT
  Age: 77 Year
  Sex: Male

DRUGS (3)
  1. DEXAMETHASONE [Suspect]
     Indication: MULTIPLE MYELOMA
     Dosage: 20 MILLIGRAM
     Route: 048
     Dates: start: 20110408, end: 20110829
  2. REVLIMID [Suspect]
     Indication: MULTIPLE MYELOMA
     Dosage: 10 MILLIGRAM
     Route: 048
     Dates: start: 20110408, end: 20110828
  3. CYCLOPHOSPHAMIDE [Suspect]
     Indication: MULTIPLE MYELOMA
     Dosage: 500 MILLIGRAM
     Route: 048
     Dates: start: 20110408, end: 20110819

REACTIONS (3)
  - RENAL FAILURE ACUTE [None]
  - BILIARY DILATATION [None]
  - DEATH [None]
